FAERS Safety Report 25468123 (Version 1)
Quarter: 2025Q2

REPORT INFORMATION
  Report Type: Report from Study
  Country: IT (occurrence: IT)
  Receive Date: 20250623
  Receipt Date: 20250623
  Transmission Date: 20250717
  Serious: Yes (Death, Hospitalization)
  Sender: CHIESI
  Company Number: IT-CHIESI-2025CHF04183

PATIENT
  Sex: Male

DRUGS (3)
  1. BIRCH BARK\HERBALS [Suspect]
     Active Substance: BIRCH BARK\HERBALS
     Indication: Epidermolysis bullosa
     Dosage: UNK, QOD
     Dates: start: 20250220
  2. BIRCH BARK\HERBALS [Suspect]
     Active Substance: BIRCH BARK\HERBALS
     Indication: Epidermolysis bullosa
  3. GENTAMICIN [Concomitant]
     Active Substance: GENTAMICIN
     Indication: Product used for unknown indication

REACTIONS (3)
  - General physical health deterioration [Fatal]
  - Asthenia [Unknown]
  - Haemoglobin decreased [Unknown]

NARRATIVE: CASE EVENT DATE: 20250609
